FAERS Safety Report 10266167 (Version 1)
Quarter: 2014Q2

REPORT INFORMATION
  Report Type: Spontaneous
  Country: US (occurrence: US)
  Receive Date: 20140627
  Receipt Date: 20140627
  Transmission Date: 20141212
  Serious: No
  Sender: FDA-Public Use
  Company Number: US-TEVA-491163USA

PATIENT
  Age: 39 Year
  Sex: Female
  Weight: 59.02 kg

DRUGS (2)
  1. PARAGARD 380A [Suspect]
     Indication: CONTRACEPTION
     Route: 015
     Dates: start: 20140303
  2. ZOLOFT [Concomitant]
     Indication: POSTPARTUM DEPRESSION

REACTIONS (2)
  - Menorrhagia [Not Recovered/Not Resolved]
  - Dyspareunia [Not Recovered/Not Resolved]
